FAERS Safety Report 9875428 (Version 1)
Quarter: 2014Q1

REPORT INFORMATION
  Report Type: Spontaneous
  Country: US (occurrence: None)
  Receive Date: 20140205
  Receipt Date: 20140205
  Transmission Date: 20141002
  Serious: No
  Sender: FDA-Public Use
  Company Number: None

PATIENT
  Age: 48 Year
  Sex: Male

DRUGS (5)
  1. SEROQUEL [Suspect]
     Indication: BIPOLAR DISORDER
     Dosage: 100MG  AT NIGHT
  2. SEROQUEL [Suspect]
     Indication: INSOMNIA
     Dosage: 100MG  AT NIGHT
  3. AMBIEN [Concomitant]
  4. TYLENOL PM [Concomitant]
  5. XANAX [Concomitant]

REACTIONS (3)
  - Product substitution issue [None]
  - Product substitution issue [None]
  - Drug ineffective [None]
